FAERS Safety Report 7524642-X (Version None)
Quarter: 2011Q2

REPORT INFORMATION
  Report Type: 
  Country: None (occurrence: None)
  Receive Date: 20110525
  Receipt Date: 20110510
  Transmission Date: 20111010
  Serious: Yes (Life-Threatening, Hospitalization, Other)
  Sender: FDA-Public Use
  Company Number: 2011MA005771

PATIENT
  Age: 64 Year
  Sex: Female

DRUGS (3)
  1. DIAZEPAM [Concomitant]
  2. AMITRIPTYLINE HYDROCHLORIDE [Concomitant]
  3. FEVERALL [Suspect]
     Dosage: 23.94 G, 1X, PO
     Route: 048

REACTIONS (6)
  - HEART RATE INCREASED [None]
  - COMA SCALE ABNORMAL [None]
  - ACCIDENTAL EXPOSURE [None]
  - SOMNOLENCE [None]
  - OVERDOSE [None]
  - AGITATION [None]
